FAERS Safety Report 5499739-9 (Version None)
Quarter: 2007Q4

REPORT INFORMATION
  Report Type: 
  Country: None (occurrence: None)
  Receive Date: 20071026
  Receipt Date: 20071004
  Transmission Date: 20080405
  Serious: No
  Sender: FDA-Public Use
  Company Number: US-BOEHRINGER INGELHEIM PHARMACEUTICALS, INC.-2007-BP-22282BP

PATIENT
  Sex: Female

DRUGS (1)
  1. APTIVUS/RITONAVIR CAPSULES [Suspect]

REACTIONS (2)
  - CHEILITIS [None]
  - LIP SWELLING [None]
